FAERS Safety Report 23706040 (Version 1)
Quarter: 2024Q2

REPORT INFORMATION
  Report Type: Spontaneous
  Country: CN (occurrence: CN)
  Receive Date: 20240404
  Receipt Date: 20240404
  Transmission Date: 20240716
  Serious: Yes (Other)
  Sender: FDA-Public Use
  Company Number: None

PATIENT
  Age: 14 Year
  Sex: Female
  Weight: 40 kg

DRUGS (1)
  1. OLANZAPINE [Suspect]
     Active Substance: OLANZAPINE
     Indication: Psychotic disorder
     Dosage: 2.5MG,BID
     Route: 048
     Dates: start: 20240221, end: 20240315

REACTIONS (2)
  - Akinesia [Not Recovered/Not Resolved]
  - Reduced facial expression [Not Recovered/Not Resolved]

NARRATIVE: CASE EVENT DATE: 20240315
